FAERS Safety Report 12254601 (Version 2)
Quarter: 2016Q2

REPORT INFORMATION
  Report Type: Spontaneous
  Country: JP (occurrence: JP)
  Receive Date: 20160411
  Receipt Date: 20160620
  Transmission Date: 20160815
  Serious: Yes (Death)
  Sender: FDA-Public Use
  Company Number: JP-TEVA-649044ISR

PATIENT
  Age: 73 Year
  Sex: Male
  Weight: 40 kg

DRUGS (17)
  1. FENTOS [Concomitant]
     Active Substance: FENTANYL
     Dosage: 4 MILLIGRAM DAILY;
     Route: 062
     Dates: start: 20150220, end: 20150220
  2. PREDNISOLONE. [Concomitant]
     Active Substance: PREDNISOLONE
     Indication: MALAISE
     Dosage: 5 MILLIGRAM DAILY;
     Route: 048
     Dates: start: 20150116
  3. E-FEN BUCCAL [Suspect]
     Active Substance: FENTANYL CITRATE
     Dosage: 100 MICROGRAM- 400 MICROGRAM
     Route: 002
     Dates: start: 20150213, end: 20150220
  4. FENTOS [Concomitant]
     Active Substance: FENTANYL
     Indication: CANCER PAIN
     Dosage: 1 MILLIGRAM DAILY;
     Route: 062
     Dates: start: 20150207, end: 20150209
  5. CALCIUM LACTATE HYDRATE [Concomitant]
     Active Substance: CALCIUM LACTATE
     Indication: HYPOCALCAEMIA
     Dosage: 2 GRAM DAILY;
     Route: 048
     Dates: start: 20140919
  6. UFT [Concomitant]
     Active Substance: TEGAFUR\URACIL
     Indication: GASTRIC CANCER
     Dosage: 300 MILLIGRAM DAILY;
     Route: 048
     Dates: start: 20140829, end: 20150206
  7. E-FEN BUCCAL [Suspect]
     Active Substance: FENTANYL CITRATE
     Indication: BREAKTHROUGH PAIN
     Dosage: 50 MICROGRAM-200 MICROGRAM
     Route: 002
     Dates: start: 20150207, end: 20150213
  8. BERIZYM [Concomitant]
     Active Substance: CELLULASE\DIASTASE\LIPASE
     Indication: DYSPEPSIA
     Route: 048
     Dates: start: 20140203
  9. LOPEMIN [Concomitant]
     Active Substance: LOPERAMIDE HYDROCHLORIDE
     Indication: DIARRHOEA
     Dosage: 2 MILLIGRAM DAILY;
     Route: 048
     Dates: start: 20140408
  10. MOBIC [Concomitant]
     Active Substance: MELOXICAM
     Indication: CANCER PAIN
     Dosage: 10 MILLIGRAM DAILY;
     Route: 048
     Dates: start: 20150218, end: 20150219
  11. FOLIAMIN [Concomitant]
     Active Substance: FOLIC ACID
     Indication: ANAEMIA
     Dosage: 15 MILLIGRAM DAILY;
     Route: 048
     Dates: start: 20140318
  12. DENOTAS [Concomitant]
     Active Substance: CALCIUM CARBONATE\CHOLECALCIFEROL\MAGNESIUM CARBONATE
     Indication: MINERAL SUPPLEMENTATION
     Dosage: 2 DOSAGE FORMS DAILY;
     Route: 048
     Dates: start: 20140725
  13. FENTOS [Concomitant]
     Active Substance: FENTANYL
     Dosage: 4 MILLIGRAM DAILY;
     Route: 062
     Dates: start: 20150216, end: 20150218
  14. FERROMIA [Concomitant]
     Active Substance: FERROUS CITRATE
     Indication: IRON DEFICIENCY ANAEMIA
     Dosage: 100 MILLIGRAM DAILY;
     Route: 048
     Dates: start: 20140318, end: 20150206
  15. FENTOS [Concomitant]
     Active Substance: FENTANYL
     Dosage: 3 MILLIGRAM DAILY;
     Route: 062
     Dates: start: 20150214, end: 20150215
  16. FENTOS [Concomitant]
     Active Substance: FENTANYL
     Dosage: 6 MILLIGRAM DAILY;
     Route: 062
     Dates: start: 20150219, end: 20150219
  17. LENDORMIN [Concomitant]
     Active Substance: BROTIZOLAM
     Indication: INSOMNIA
     Dosage: .25 MILLIGRAM DAILY;
     Route: 048
     Dates: start: 20140211

REACTIONS (2)
  - Gastric cancer [Fatal]
  - Condition aggravated [Fatal]

NARRATIVE: CASE EVENT DATE: 20150221
